FAERS Safety Report 8576704-6 (Version None)
Quarter: 2012Q3

REPORT INFORMATION
  Report Type: 
  Country: None (occurrence: None)
  Receive Date: 20120807
  Receipt Date: 20120801
  Transmission Date: 20120928
  Serious: Yes (Other)
  Sender: FDA-Public Use
  Company Number: US-GLAXOSMITHKLINE-A0988485A

PATIENT
  Age: 59 Year
  Sex: Male
  Weight: 87 kg

DRUGS (18)
  1. VOTRIENT [Suspect]
     Dosage: 800MG PER DAY
     Route: 048
  2. WELLBUTRIN [Concomitant]
  3. IMODIUM [Concomitant]
  4. FLOMAX [Concomitant]
  5. ASCORBIC ACID [Concomitant]
  6. FLORINEF [Concomitant]
  7. IRON [Concomitant]
  8. PHENERGAN HCL [Concomitant]
  9. ZESTRIL [Concomitant]
  10. MULTI-VITAMIN [Concomitant]
  11. ZOFRAN [Concomitant]
  12. PROCRIT [Concomitant]
  13. TOPAMAX [Concomitant]
  14. ZOCOR [Concomitant]
  15. COREG [Concomitant]
  16. PREDNISONE [Concomitant]
  17. NORVASC [Concomitant]
  18. VITAMIN B-12 [Concomitant]

REACTIONS (13)
  - FATIGUE [None]
  - OCULAR ICTERUS [None]
  - VOMITING [None]
  - ALOPECIA [None]
  - WEIGHT DECREASED [None]
  - DECREASED APPETITE [None]
  - DIZZINESS [None]
  - CONTUSION [None]
  - CONSTIPATION [None]
  - YELLOW SKIN [None]
  - NAUSEA [None]
  - FOOD INTERACTION [None]
  - DIARRHOEA [None]
